FAERS Safety Report 18816323 (Version 1)
Quarter: 2021Q1

REPORT INFORMATION
  Report Type: Spontaneous
  Country: US (occurrence: US)
  Receive Date: 20210201
  Receipt Date: 20210201
  Transmission Date: 20210419
  Serious: Yes (Other)
  Sender: FDA-Public Use
  Company Number: None

PATIENT
  Age: 62 Year
  Sex: Female
  Weight: 77.85 kg

DRUGS (1)
  1. ABILIFY MAINTENA [Suspect]
     Active Substance: ARIPIPRAZOLE
     Indication: AFFECTIVE DISORDER

REACTIONS (5)
  - Dizziness [None]
  - Head injury [None]
  - Hyperphagia [None]
  - Circulatory collapse [None]
  - Fall [None]

NARRATIVE: CASE EVENT DATE: 20210124
